FAERS Safety Report 6930036-8 (Version None)
Quarter: 2010Q3

REPORT INFORMATION
  Report Type: 
  Country: None (occurrence: None)
  Receive Date: 20100818
  Receipt Date: 20100806
  Transmission Date: 20110219
  Serious: Yes (Other)
  Sender: FDA-Public Use
  Company Number: JP-PFIZER INC-2010088811

PATIENT
  Age: 37 Year
  Sex: Male
  Weight: 70 kg

DRUGS (6)
  1. ZITHROMAC [Suspect]
     Indication: MYCOPLASMA INFECTION
     Dosage: 250 MG, 2X/DAY
     Route: 048
     Dates: start: 20100713, end: 20100715
  2. SYMBICORT [Suspect]
     Indication: COUGH
     Dosage: UNK
     Dates: start: 20100713, end: 20100715
  3. SYMBICORT [Suspect]
     Indication: ASTHMA
  4. MUCODYNE [Concomitant]
     Indication: COUGH
     Dosage: 500 MG, 3X/DAY
     Route: 048
     Dates: start: 20100713, end: 20100715
  5. SHOUSEIRYUUTOU [Concomitant]
     Indication: COUGH
     Dosage: 0.83 G, 3X/DAY
     Route: 048
     Dates: start: 20100713, end: 20100715
  6. MAKYOUKANSEKITOU [Concomitant]
     Indication: COUGH
     Dosage: 1.66 G, 3X/DAY
     Route: 048
     Dates: start: 20100713, end: 20100715

REACTIONS (4)
  - DIARRHOEA [None]
  - HEADACHE [None]
  - NAUSEA [None]
  - VISUAL IMPAIRMENT [None]
